FAERS Safety Report 25262176 (Version 2)
Quarter: 2025Q2

REPORT INFORMATION
  Report Type: Spontaneous
  Country: JP (occurrence: JP)
  Receive Date: 20250502
  Receipt Date: 20250617
  Transmission Date: 20250716
  Serious: Yes (Life-Threatening, Other)
  Sender: STRIDES
  Company Number: None

PATIENT
  Age: 29 Year
  Sex: Male
  Weight: 52.2 kg

DRUGS (11)
  1. TACROLIMUS [Interacting]
     Active Substance: TACROLIMUS
     Indication: Immunosuppressant drug therapy
     Route: 065
  2. TACROLIMUS [Interacting]
     Active Substance: TACROLIMUS
     Route: 065
  3. MYCOPHENOLATE MOFETIL [Suspect]
     Active Substance: MYCOPHENOLATE MOFETIL
     Indication: Immunosuppressant drug therapy
     Route: 065
  4. MYCOPHENOLATE MOFETIL [Suspect]
     Active Substance: MYCOPHENOLATE MOFETIL
     Route: 065
  5. ETOPOSIDE [Interacting]
     Active Substance: ETOPOSIDE
     Indication: Testicular cancer metastatic
     Route: 065
  6. METHYLPREDNISOLONE [Suspect]
     Active Substance: METHYLPREDNISOLONE
     Indication: Immunosuppressant drug therapy
     Route: 065
  7. BLEOMYCIN [Suspect]
     Active Substance: BLEOMYCIN SULFATE
     Indication: Testicular cancer metastatic
     Route: 065
  8. CISPLATIN [Suspect]
     Active Substance: CISPLATIN
     Indication: Testicular cancer metastatic
     Route: 065
  9. LENOGRASTIM [Concomitant]
     Active Substance: LENOGRASTIM
     Indication: Product used for unknown indication
     Route: 065
  10. CEFEPIME [Concomitant]
     Active Substance: CEFEPIME HYDROCHLORIDE
     Indication: Product used for unknown indication
     Route: 065
  11. CYCLOPHOSPHAMIDE [Concomitant]
     Active Substance: CYCLOPHOSPHAMIDE
     Indication: Product used for unknown indication
     Route: 065

REACTIONS (10)
  - Testicular cancer metastatic [Recovered/Resolved]
  - Metastases to lymph nodes [Recovering/Resolving]
  - Thrombocytopenia [Recovering/Resolving]
  - Neutropenia [Recovered/Resolved]
  - Febrile neutropenia [Recovered/Resolved]
  - Pancreatitis [Recovering/Resolving]
  - Immunosuppressant drug level increased [Unknown]
  - Drug interaction [Unknown]
  - Cytomegalovirus infection [Recovering/Resolving]
  - Anaemia [Recovering/Resolving]
